FAERS Safety Report 11200531 (Version 1)
Quarter: 2015Q2

REPORT INFORMATION
  Report Type: Spontaneous
  Country: BR (occurrence: BR)
  Receive Date: 20150618
  Receipt Date: 20150618
  Transmission Date: 20150821
  Serious: Yes (Hospitalization, Other)
  Sender: FDA-Public Use
  Company Number: BR-B.I. PHARMACEUTICALS,INC./RIDGEFIELD-2015-BI-31894BR

PATIENT
  Sex: Male

DRUGS (1)
  1. TRAYENTA DUO [Suspect]
     Active Substance: LINAGLIPTIN\METFORMIN HYDROCHLORIDE
     Indication: TYPE 2 DIABETES MELLITUS
     Route: 065

REACTIONS (4)
  - Pain [Recovered/Resolved]
  - Cholelithiasis [Unknown]
  - Pancreatitis [Recovered/Resolved]
  - Gallbladder cancer [Unknown]
